FAERS Safety Report 7709525-4 (Version None)
Quarter: 2011Q3

REPORT INFORMATION
  Report Type: 
  Country: None (occurrence: None)
  Receive Date: 20110825
  Receipt Date: 20110817
  Transmission Date: 20111222
  Serious: Yes (Other)
  Sender: FDA-Public Use
  Company Number: FR-US-EMD SERONO, INC.-7077637

PATIENT
  Age: 57 Year
  Sex: Female

DRUGS (4)
  1. DAUNORUBICIN HYDROCHLORIDE [Suspect]
     Indication: ACUTE MYELOID LEUKAEMIA
     Dates: start: 20080403
  2. NOVANTRONE [Suspect]
     Indication: ACUTE MYELOID LEUKAEMIA
     Dates: start: 20080506
  3. CYTARABINE [Suspect]
     Dates: start: 20080506
  4. CYTARABINE [Suspect]
     Indication: ACUTE MYELOID LEUKAEMIA
     Dates: start: 20080403

REACTIONS (2)
  - THROMBOCYTOPENIA [None]
  - AGRANULOCYTOSIS [None]
